FAERS Safety Report 11911226 (Version 1)
Quarter: 2016Q1

REPORT INFORMATION
  Report Type: Spontaneous
  Country: CA (occurrence: CA)
  Receive Date: 20160112
  Receipt Date: 20160112
  Transmission Date: 20160526
  Serious: Yes (Disabling)
  Sender: FDA-Public Use
  Company Number: CA-FRESENIUS KABI-FK201600128

PATIENT
  Age: 69 Year
  Sex: Female

DRUGS (1)
  1. LEVOTHYROXINE SODIUM FOR INJECTION (MANUFACTURER UNKNOWN) [Suspect]
     Active Substance: LEVOTHYROXINE SODIUM
     Indication: PRODUCT USED FOR UNKNOWN INDICATION
     Route: 065

REACTIONS (4)
  - Nausea [Unknown]
  - Product substitution issue [Unknown]
  - Abdominal pain [Unknown]
  - Dyspepsia [Unknown]
